FAERS Safety Report 4846795-4 (Version None)
Quarter: 2005Q4

REPORT INFORMATION
  Report Type: 
  Country: None (occurrence: None)
  Receive Date: 20051207
  Receipt Date: 20051128
  Transmission Date: 20060501
  Serious: Yes (Other)
  Sender: FDA-Public Use
  Company Number: PHRM2005FR03096

PATIENT
  Sex: Female

DRUGS (1)
  1. LEPONEX [Suspect]
     Dosage: 150 MG, DAILY
     Route: 048
     Dates: start: 20051101

REACTIONS (2)
  - FACE OEDEMA [None]
  - URTICARIA [None]
